FAERS Safety Report 26189930 (Version 1)
Quarter: 2025Q4

REPORT INFORMATION
  Report Type: Spontaneous
  Country: US (occurrence: US)
  Receive Date: 20251223
  Receipt Date: 20251223
  Transmission Date: 20260117
  Serious: No
  Sender: MERCK SHARP & DOHME LLC
  Company Number: US-009507513-2360879

PATIENT
  Age: 78 Year
  Sex: Female

DRUGS (2)
  1. VERQUVO [Suspect]
     Active Substance: VERICIGUAT
     Dosage: 2.5MG/ONCE DAILY
     Route: 048
     Dates: start: 2025
  2. ENTRESTO water pills [Concomitant]
     Route: 065

REACTIONS (2)
  - Abdominal discomfort [Unknown]
  - Pain in extremity [Unknown]

NARRATIVE: CASE EVENT DATE: 20250101
